FAERS Safety Report 7058273-5 (Version None)
Quarter: 2010Q4

REPORT INFORMATION
  Report Type: 
  Country: None (occurrence: None)
  Receive Date: 20101022
  Receipt Date: 20101011
  Transmission Date: 20110411
  Serious: Yes (Other)
  Sender: FDA-Public Use
  Company Number: US-PFIZER INC-2010132076

PATIENT
  Sex: Female
  Weight: 90.703 kg

DRUGS (3)
  1. GLUCOTROL XL [Suspect]
     Indication: BLOOD GLUCOSE INCREASED
     Dosage: 10 MG, 1X/DAY
     Route: 048
  2. GLUCOTROL XL [Suspect]
     Indication: DIABETES MELLITUS
  3. AVAPRO [Concomitant]
     Indication: HYPERTENSION
     Dosage: UNK

REACTIONS (7)
  - ABDOMINAL DISCOMFORT [None]
  - DIZZINESS [None]
  - FEELING HOT [None]
  - MALAISE [None]
  - NERVOUSNESS [None]
  - PRODUCT QUALITY ISSUE [None]
  - WEIGHT DECREASED [None]
